FAERS Safety Report 14082729 (Version 6)
Quarter: 2019Q1

REPORT INFORMATION
  Report Type: Report from Study
  Country: FR (occurrence: FR)
  Receive Date: 20171013
  Receipt Date: 20190203
  Transmission Date: 20190417
  Serious: Yes (Hospitalization, Other)
  Sender: FDA-Public Use
  Company Number: FR-BRISTOL-MYERS SQUIBB COMPANY-BMS-2017-077480

PATIENT
  Age: 63 Year
  Sex: Male

DRUGS (8)
  1. SPASFON                            /00765801/ [Concomitant]
     Active Substance: PHLOROGLUCINOL\1,3,5-TRIMETHOXYBENZENE
     Indication: PRODUCT USED FOR UNKNOWN INDICATION
     Route: 065
  2. NIVOLUMAB [Suspect]
     Active Substance: NIVOLUMAB
     Indication: LUNG NEOPLASM MALIGNANT
     Dosage: 160 MG, Q2WK
     Route: 042
     Dates: start: 20170209, end: 20170323
  3. FENTANYL TRANSDERMAL SYSTEM [Concomitant]
     Active Substance: FENTANYL
     Indication: PRODUCT USED FOR UNKNOWN INDICATION
     Route: 065
  4. EUPANTOL [Concomitant]
     Active Substance: PANTOPRAZOLE SODIUM
     Indication: PRODUCT USED FOR UNKNOWN INDICATION
     Route: 065
  5. OXYCONTIN [Concomitant]
     Active Substance: OXYCODONE HYDROCHLORIDE
     Indication: PRODUCT USED FOR UNKNOWN INDICATION
     Route: 065
  6. PROFENID [Concomitant]
     Active Substance: KETOPROFEN
     Indication: PRODUCT USED FOR UNKNOWN INDICATION
     Route: 065
  7. LEVOCARNIL                         /00878601/ [Concomitant]
     Active Substance: LEVOCARNITINE
     Indication: PRODUCT USED FOR UNKNOWN INDICATION
     Route: 065
  8. OXYNORM [Concomitant]
     Active Substance: OXYCODONE HYDROCHLORIDE
     Indication: PRODUCT USED FOR UNKNOWN INDICATION
     Route: 065

REACTIONS (6)
  - General physical health deterioration [Recovering/Resolving]
  - Anaemia [Recovered/Resolved]
  - Metastases to bone [Unknown]
  - Pelvic pain [Recovered/Resolved]
  - Dehydration [Recovered/Resolved]
  - Arthralgia [Not Recovered/Not Resolved]

NARRATIVE: CASE EVENT DATE: 20170515
